FAERS Safety Report 21316248 (Version 1)
Quarter: 2022Q3

REPORT INFORMATION
  Report Type: Spontaneous
  Country: JP (occurrence: JP)
  Receive Date: 20220910
  Receipt Date: 20220910
  Transmission Date: 20221027
  Serious: Yes (Other)
  Sender: FDA-Public Use
  Company Number: JP-AMGEN-JPNSP2022156503

PATIENT

DRUGS (1)
  1. LUMAKRAS [Suspect]
     Active Substance: SOTORASIB
     Indication: Product used for unknown indication
     Route: 048

REACTIONS (2)
  - Carcinoembryonic antigen increased [Unknown]
  - KL-6 increased [Unknown]

NARRATIVE: CASE EVENT DATE: 20220101
